FAERS Safety Report 20835559 (Version 1)
Quarter: 2022Q2

REPORT INFORMATION
  Report Type: Spontaneous
  Country: US (occurrence: US)
  Receive Date: 20220516
  Receipt Date: 20220516
  Transmission Date: 20220720
  Serious: No
  Sender: FDA-Public Use
  Company Number: US-SA-SAC20220511001862

PATIENT
  Age: 59 Year
  Sex: Female

DRUGS (14)
  1. AUBAGIO [Suspect]
     Active Substance: TERIFLUNOMIDE
     Indication: Multiple sclerosis
     Dosage: 14 MG, QD
     Route: 048
     Dates: start: 202105
  2. FLUCELVAX QUAD [Concomitant]
  3. PFIZER-BIONTECH COVID-19 VACCINE [Concomitant]
     Active Substance: TOZINAMERAN
     Indication: COVID-19
  4. SUDAFED 12 HOUR [Concomitant]
     Active Substance: PSEUDOEPHEDRINE HYDROCHLORIDE
  5. FLONASE ALLERGY RELIEF [Concomitant]
     Active Substance: FLUTICASONE PROPIONATE
  6. ACYCLOVIR [Concomitant]
     Active Substance: ACYCLOVIR
  7. VAGIFEM [Concomitant]
     Active Substance: ESTRADIOL
  8. CRANBERRY [Concomitant]
     Active Substance: CRANBERRY
  9. ASCORBIC ACID\ZINC [Concomitant]
     Active Substance: ASCORBIC ACID\ZINC
  10. ASPIRIN [Concomitant]
     Active Substance: ASPIRIN
  11. CALCIUM\VITAMIN D [Concomitant]
     Active Substance: CALCIUM\VITAMIN D
  12. WELLBUTRIN XL [Concomitant]
     Active Substance: BUPROPION HYDROCHLORIDE
  13. PROBIOTIC 10 [BIFIDOBACTERIUM LACTIS;LACTOBACILLUS ACIDOPHILUS;LACTOBA [Concomitant]
  14. B12 ACTIVE [Concomitant]

REACTIONS (3)
  - Sinonasal obstruction [Unknown]
  - COVID-19 [Recovered/Resolved]
  - Frustration tolerance decreased [Unknown]

NARRATIVE: CASE EVENT DATE: 20220101
